FAERS Safety Report 9502790 (Version 1)
Quarter: 2013Q3

REPORT INFORMATION
  Report Type: Report from Study
  Country: BE (occurrence: BE)
  Receive Date: 20130906
  Receipt Date: 20130906
  Transmission Date: 20140515
  Serious: Yes (Hospitalization)
  Sender: FDA-Public Use
  Company Number: BE-JNJFOC-20130817451

PATIENT
  Age: 57 Year
  Sex: Female
  Weight: 75 kg

DRUGS (5)
  1. INFLIXIMAB, RECOMBINANT [Suspect]
     Indication: PRODUCT USED FOR UNKNOWN INDICATION
     Route: 042
     Dates: start: 20130807
  2. INFLIXIMAB, RECOMBINANT [Suspect]
     Indication: PRODUCT USED FOR UNKNOWN INDICATION
     Route: 042
     Dates: start: 20120918
  3. IMURAN [Concomitant]
     Route: 048
     Dates: start: 20121002
  4. MEDROL [Concomitant]
     Route: 048
     Dates: start: 20130826, end: 20130830
  5. ZINNAT [Concomitant]
     Route: 048
     Dates: start: 20130826, end: 20130830

REACTIONS (1)
  - Inflammation [Unknown]
